FAERS Safety Report 4303358-7 (Version None)
Quarter: 2004Q1

REPORT INFORMATION
  Report Type: 
  Country: None (occurrence: None)
  Receive Date: 20040223
  Receipt Date: 20040212
  Transmission Date: 20041129
  Serious: Yes (Other)
  Sender: FDA-Public Use
  Company Number: 2004-02-1220

PATIENT
  Sex: Male

DRUGS (7)
  1. REBETOL [Suspect]
     Indication: HEPATITIS C
     Dosage: 800 MG QD ORAL
     Route: 048
  2. INTRON A [Suspect]
     Indication: HEPATITIS C
     Dosage: SEE IMAGE
     Route: 030
  3. INTRON A [Suspect]
     Indication: HEPATITIS C
     Dosage: SEE IMAGE
     Route: 030
  4. INTRON A [Suspect]
     Indication: HEPATITIS C
     Dosage: SEE IMAGE
     Route: 030
  5. DIGOXIN [Concomitant]
  6. WARFARIN POTASSIUM [Concomitant]
  7. ZOPICLONE [Concomitant]

REACTIONS (3)
  - CARDIAC FAILURE [None]
  - HAEMOGLOBIN DECREASED [None]
  - MALAISE [None]
